FAERS Safety Report 9217077 (Version 2)
Quarter: 2013Q2

REPORT INFORMATION
  Report Type: Spontaneous
  Country: DE (occurrence: DE)
  Receive Date: 20130408
  Receipt Date: 20130417
  Transmission Date: 20140414
  Serious: Yes (Death)
  Sender: FDA-Public Use
  Company Number: DE-TEVA-394852GER

PATIENT
  Sex: Male
  Weight: 1.7 kg

DRUGS (1)
  1. PROPAFENONE [Suspect]
     Indication: SUPRAVENTRICULAR EXTRASYSTOLES

REACTIONS (4)
  - Arrhythmia [Fatal]
  - Cardiac failure [Fatal]
  - Circulatory collapse [Fatal]
  - Drug level increased [Fatal]
